FAERS Safety Report 25494442 (Version 1)
Quarter: 2025Q2

REPORT INFORMATION
  Report Type: Spontaneous
  Country: PT (occurrence: PT)
  Receive Date: 20250630
  Receipt Date: 20250630
  Transmission Date: 20250716
  Serious: Yes (Other)
  Sender: MYLAN
  Company Number: PT-MYLANLABS-2025M1054179

PATIENT
  Sex: Female

DRUGS (16)
  1. LATANOPROST [Suspect]
     Active Substance: LATANOPROST
     Indication: Developmental glaucoma
     Dosage: UNK UNK, QD
  2. LATANOPROST [Suspect]
     Active Substance: LATANOPROST
     Dosage: UNK UNK, QD
     Route: 065
  3. LATANOPROST [Suspect]
     Active Substance: LATANOPROST
     Dosage: UNK UNK, QD
     Route: 065
  4. LATANOPROST [Suspect]
     Active Substance: LATANOPROST
     Dosage: UNK UNK, QD
  5. TIMOLOL [Concomitant]
     Active Substance: TIMOLOL
     Indication: Developmental glaucoma
     Dosage: UNK UNK, BID
  6. TIMOLOL [Concomitant]
     Active Substance: TIMOLOL
     Dosage: UNK UNK, BID
     Route: 065
  7. TIMOLOL [Concomitant]
     Active Substance: TIMOLOL
     Dosage: UNK UNK, BID
     Route: 065
  8. TIMOLOL [Concomitant]
     Active Substance: TIMOLOL
     Dosage: UNK UNK, BID
  9. BRINZOLAMIDE [Concomitant]
     Active Substance: BRINZOLAMIDE
     Indication: Developmental glaucoma
     Dosage: UNK UNK, BID
  10. BRINZOLAMIDE [Concomitant]
     Active Substance: BRINZOLAMIDE
     Dosage: UNK UNK, BID
     Route: 065
  11. BRINZOLAMIDE [Concomitant]
     Active Substance: BRINZOLAMIDE
     Dosage: UNK UNK, BID
     Route: 065
  12. BRINZOLAMIDE [Concomitant]
     Active Substance: BRINZOLAMIDE
     Dosage: UNK UNK, BID
  13. FLUOROMETHOLONE [Concomitant]
     Active Substance: FLUOROMETHOLONE
     Indication: Corneal opacity
     Dosage: UNK, QD
  14. FLUOROMETHOLONE [Concomitant]
     Active Substance: FLUOROMETHOLONE
     Dosage: UNK, QD
     Route: 065
  15. FLUOROMETHOLONE [Concomitant]
     Active Substance: FLUOROMETHOLONE
     Dosage: UNK, QD
     Route: 065
  16. FLUOROMETHOLONE [Concomitant]
     Active Substance: FLUOROMETHOLONE
     Dosage: UNK, QD

REACTIONS (1)
  - Drug ineffective [Unknown]
